FAERS Safety Report 9582565 (Version 1)
Quarter: 2013Q4

REPORT INFORMATION
  Report Type: Spontaneous
  Country: US (occurrence: US)
  Receive Date: 20131002
  Receipt Date: 20131002
  Transmission Date: 20140711
  Serious: No
  Sender: FDA-Public Use
  Company Number: US-AMGEN-USASP2013041465

PATIENT
  Age: 66 Year
  Sex: Female
  Weight: 86.62 kg

DRUGS (8)
  1. ENBREL [Suspect]
     Indication: PRODUCT USED FOR UNKNOWN INDICATION
     Dosage: 50 MG, QWK
     Route: 058
  2. CYMBALTA [Concomitant]
     Dosage: 20 MG, UNK
  3. SYNTHROID [Concomitant]
     Dosage: 88 MUG, UNK
  4. ARAVA [Concomitant]
     Dosage: 10 MG, UNK
  5. LISINOPRIL [Concomitant]
     Dosage: 5 MG, UNK
  6. ATENOLOL [Concomitant]
     Dosage: 25 MG, UNK
  7. FUROSEMIDE [Concomitant]
     Dosage: 40 MG, UNK
  8. POTASSIUM [Concomitant]
     Dosage: 75 MG, UNK

REACTIONS (4)
  - Therapeutic response decreased [Unknown]
  - Joint swelling [Unknown]
  - Local swelling [Unknown]
  - Pain [Unknown]
